FAERS Safety Report 7452394-0 (Version None)
Quarter: 2011Q2

REPORT INFORMATION
  Report Type: 
  Country: None (occurrence: None)
  Receive Date: 20110425
  Receipt Date: 20110411
  Transmission Date: 20111010
  Serious: Yes (Death, Hospitalization, Other)
  Sender: FDA-Public Use
  Company Number: US-ACCORD-008759

PATIENT
  Age: 59 Year
  Sex: Female

DRUGS (4)
  1. ETOPOSIDE [Suspect]
     Indication: MANTLE CELL LYMPHOMA STAGE IV
     Dosage: 190.00-MG-2.00 TIMES PER-1.0DAYS / INTRAVENOUS (NOT OTHERWISE SPECIFIED)
     Route: 042
  2. MELPHALAN HYDROCHLORIDE [Suspect]
     Indication: MANTLE CELL LYMPHOMA STAGE IV
     Dosage: 265.00-MG-/INTRAVENOUS (NOT OTHERWISE SPECIFIED)
     Route: 042
  3. CYTARABINE [Suspect]
     Indication: MANTLE CELL LYMPHOMA STAGE IV
     Dosage: 190.00-MG-2.00 TIMES PER-1.0DAYS INTRAVENOUS (NOT OTHERWISE SPECIFIED)
     Route: 042
  4. CARMUSTINE [Suspect]
     Indication: MANTLE CELL LYMPHOMA STAGE IV
     Dosage: 570.00-MG-/ INTRAVENOUS (NOT OTHERWISE
     Route: 042

REACTIONS (8)
  - PULMONARY CONGESTION [None]
  - PULMONARY OEDEMA [None]
  - PNEUMOTHORAX [None]
  - OFF LABEL USE [None]
  - VENTRICULAR TACHYCARDIA [None]
  - THROMBOSIS IN DEVICE [None]
  - CARDIAC ARREST [None]
  - BRADYCARDIA [None]
